FAERS Safety Report 10103159 (Version 1)
Quarter: 2014Q2

REPORT INFORMATION
  Report Type: Spontaneous
  Country: US (occurrence: US)
  Receive Date: 20140424
  Receipt Date: 20140424
  Transmission Date: 20141212
  Serious: No
  Sender: FDA-Public Use
  Company Number: US-BRISTOL-MYERS SQUIBB COMPANY-20140935

PATIENT
  Age: 87 Year
  Sex: Male
  Weight: 61.22 kg

DRUGS (7)
  1. ELIQUIS [Suspect]
     Dosage: TABS
     Dates: start: 201401
  2. AMLODIPINE [Concomitant]
  3. LISINOPRIL [Concomitant]
  4. HYDROCHLOROTHIAZIDE [Concomitant]
  5. PANTOPRAZOLE [Concomitant]
  6. FINASTERIDE [Concomitant]
  7. TRAZODONE HCL [Concomitant]

REACTIONS (1)
  - Sensation of foreign body [Unknown]
